FAERS Safety Report 18964801 (Version 1)
Quarter: 2021Q1

REPORT INFORMATION
  Report Type: Spontaneous
  Country: US (occurrence: US)
  Receive Date: 20210303
  Receipt Date: 20210303
  Transmission Date: 20210420
  Serious: No
  Sender: FDA-Public Use
  Company Number: US-AMNEAL PHARMACEUTICALS-2020-AMRX-01139

PATIENT
  Age: 62 Year
  Sex: Female
  Weight: 57 kg

DRUGS (15)
  1. XADAGO [Concomitant]
     Active Substance: SAFINAMIDE MESYLATE
     Indication: PRODUCT USED FOR UNKNOWN INDICATION
     Route: 065
  2. VITAMIN B12 [VITAMIN B12 NOS] [Concomitant]
     Active Substance: CYANOCOBALAMIN
     Indication: PRODUCT USED FOR UNKNOWN INDICATION
     Route: 065
  3. VITAMIN D NOS [Concomitant]
     Active Substance: VITAMIN D NOS
     Indication: PRODUCT USED FOR UNKNOWN INDICATION
     Dosage: UNK
     Route: 065
     Dates: start: 201910
  4. ROPINIROLE. [Concomitant]
     Active Substance: ROPINIROLE
     Indication: PRODUCT USED FOR UNKNOWN INDICATION
     Dosage: UNK
     Route: 065
  5. GOCOVRI [Suspect]
     Active Substance: AMANTADINE
     Dosage: 274 MILLIGRAM, 1X/DAY, AT BEDTIME
     Route: 048
     Dates: start: 20191115, end: 20191121
  6. DOXYCYCLINE HYCLATE. [Concomitant]
     Active Substance: DOXYCYCLINE HYCLATE
     Indication: PRODUCT USED FOR UNKNOWN INDICATION
     Dosage: UNK
     Route: 065
  7. CALCIUM [Concomitant]
     Active Substance: CALCIUM
     Indication: PRODUCT USED FOR UNKNOWN INDICATION
     Route: 065
  8. SIMVASTATIN. [Concomitant]
     Active Substance: SIMVASTATIN
     Indication: PRODUCT USED FOR UNKNOWN INDICATION
     Dosage: UNK
     Route: 065
  9. GOCOVRI [Suspect]
     Active Substance: AMANTADINE
     Indication: DYSKINESIA
     Dosage: 137 MILLIGRAM, 1X/DAY, AT BEDTIME
     Route: 048
     Dates: start: 20191108, end: 20191114
  10. GOCOVRI [Suspect]
     Active Substance: AMANTADINE
     Dosage: 274 MILLIGRAM, 1X/DAY
     Route: 048
     Dates: start: 201912, end: 2020
  11. RYTARY [Suspect]
     Active Substance: CARBIDOPA\LEVODOPA
     Indication: PARKINSON^S DISEASE
     Dosage: UNK
     Route: 065
  12. GOCOVRI [Suspect]
     Active Substance: AMANTADINE
     Dosage: DOSE DECREASED
     Route: 048
     Dates: start: 2020
  13. GOCOVRI [Suspect]
     Active Substance: AMANTADINE
     Dosage: 137 MILLIGRAM, 1X/DAY, AT BEDTIME
     Route: 048
     Dates: start: 20191122, end: 201912
  14. RYTARY [Suspect]
     Active Substance: CARBIDOPA\LEVODOPA
     Dosage: DOSE DECREASED
     Route: 065
     Dates: start: 2020
  15. SENNA [SENNOSIDE A+B] [Concomitant]
     Active Substance: SENNOSIDES A AND B
     Indication: PRODUCT USED FOR UNKNOWN INDICATION
     Route: 065

REACTIONS (6)
  - Libido decreased [Recovered/Resolved]
  - Dry mouth [Recovered/Resolved]
  - Dizziness [Recovered/Resolved]
  - Visual impairment [Unknown]
  - Vision blurred [Recovered/Resolved]
  - Hallucination [Recovered/Resolved]

NARRATIVE: CASE EVENT DATE: 201911
